FAERS Safety Report 21071424 (Version 1)
Quarter: 2022Q3

REPORT INFORMATION
  Report Type: Spontaneous
  Country: US (occurrence: None)
  Receive Date: 20220712
  Receipt Date: 20220712
  Transmission Date: 20221026
  Serious: No
  Sender: FDA-Public Use
  Company Number: None

PATIENT
  Sex: Female

DRUGS (1)
  1. DIMETHYL FUMARATE [Suspect]
     Active Substance: DIMETHYL FUMARATE
     Indication: Multiple sclerosis
     Dosage: 240MG TWICE DAILY ORAL?
     Route: 048
     Dates: start: 20220608

REACTIONS (4)
  - Muscular weakness [None]
  - Headache [None]
  - Vision blurred [None]
  - Fatigue [None]
